FAERS Safety Report 5360516-0 (Version None)
Quarter: 2007Q2

REPORT INFORMATION
  Report Type: 
  Country: None (occurrence: None)
  Receive Date: 20070618
  Receipt Date: 20070608
  Transmission Date: 20071010
  Serious: Yes (Hospitalization)
  Sender: FDA-Public Use
  Company Number: B0475343A

PATIENT
  Sex: Female

DRUGS (1)
  1. AUGMENTIN '125' [Suspect]
     Indication: LOCALISED INFECTION
     Dosage: 625MG THREE TIMES PER DAY
     Route: 048

REACTIONS (4)
  - ACUTE FEBRILE NEUTROPHILIC DERMATOSIS [None]
  - ACUTE GENERALISED EXANTHEMATOUS PUSTULOSIS [None]
  - IMPETIGO [None]
  - PYREXIA [None]
